FAERS Safety Report 7348310-2 (Version None)
Quarter: 2011Q1

REPORT INFORMATION
  Report Type: 
  Country: None (occurrence: None)
  Receive Date: 20110311
  Receipt Date: 20110303
  Transmission Date: 20110831
  Serious: Yes (Other)
  Sender: FDA-Public Use
  Company Number: US-ELI_LILLY_AND_COMPANY-US201007005846

PATIENT
  Sex: Female

DRUGS (29)
  1. FORTEO [Suspect]
     Dosage: 20 UG, DAILY (1/D)
  2. FLEXERIL [Concomitant]
     Dosage: 10 MG, AS NEEDED
  3. WELLBUTRIN XL [Concomitant]
     Dosage: 10/650MG, UNKNOWN
     Route: 065
  4. VITAMIN B-12 [Concomitant]
  5. HYDROCODONE [Concomitant]
     Dosage: UNK, AS NEEDED
  6. NEXIUM [Concomitant]
     Dosage: 40 MG, DAILY (1/D)
     Route: 065
  7. CYCLOBENZAPRINE [Concomitant]
     Dosage: 3 MG, 3/D
  8. EFFEXOR XR [Concomitant]
     Dosage: 200 MG, 3/D
  9. NEURONTIN [Concomitant]
     Dosage: 500 MG, 4/D
  10. EFFEXOR [Concomitant]
     Dosage: 150 MG, EACH MORNING (3 AT ONES)
     Route: 065
  11. PREDNISONE [Concomitant]
  12. FORTEO [Suspect]
     Dosage: 20 UG, DAILY (1/D)
  13. WELLBUTRIN [Concomitant]
     Dosage: 150 MG, 3/D
  14. SEROQUEL [Concomitant]
     Dosage: 150 MG, ONE AFTER DINNER
  15. GABAPENTIN [Concomitant]
     Dosage: 800 MG, 4/D
     Route: 065
  16. FOLIC ACID [Concomitant]
  17. VITAMIN D [Concomitant]
  18. ASPIRIN [Concomitant]
  19. FORTEO [Suspect]
     Indication: OSTEOPOROSIS
     Dosage: 20 UG, DAILY (1/D)
     Dates: start: 20100505
  20. FORTEO [Suspect]
     Dosage: 20 UG, DAILY (1/D)
  21. XANAX [Concomitant]
     Dosage: UNK, AS NEEDED
  22. VOLTAREN                                /SCH/ [Concomitant]
     Dosage: UNK, UNKNOWN
     Route: 065
  23. ALPRAZOLAM [Concomitant]
     Dosage: 1 MG,AS NEEDED
  24. CELEBREX [Concomitant]
     Dosage: 200 MG, DAILY (1/D)
  25. LORTAB [Concomitant]
  26. FORTEO [Suspect]
     Dosage: 20 UG, DAILY (1/D)
  27. LUNESTA [Concomitant]
     Dosage: 3 MG, EACH EVENING
  28. VITAMIN D [Concomitant]
  29. PRAVASTATIN [Concomitant]
     Dosage: 40 MG, EACH EVENING
     Route: 065

REACTIONS (42)
  - DYSPHEMIA [None]
  - NEPHROLITHIASIS [None]
  - BONE DISORDER [None]
  - ACNE [None]
  - TREMOR [None]
  - CONTUSION [None]
  - WHITE BLOOD CELL COUNT INCREASED [None]
  - NODULE [None]
  - NEURALGIA [None]
  - ASTHENIA [None]
  - DEPRESSION [None]
  - VISUAL IMPAIRMENT [None]
  - TRANSIENT ISCHAEMIC ATTACK [None]
  - BREAST MASS [None]
  - FATIGUE [None]
  - FOOT FRACTURE [None]
  - CONVULSION [None]
  - SKIN SWELLING [None]
  - ALOPECIA [None]
  - MEMORY IMPAIRMENT [None]
  - MYALGIA [None]
  - LYMPHADENOPATHY [None]
  - OSTEOPOROSIS [None]
  - BLOOD CALCIUM INCREASED [None]
  - STRESS [None]
  - BONE FORMATION INCREASED [None]
  - FALL [None]
  - DEVICE BREAKAGE [None]
  - ALTERED STATE OF CONSCIOUSNESS [None]
  - BRAIN INJURY [None]
  - ARTHRALGIA [None]
  - PAIN [None]
  - BRAIN SCAN ABNORMAL [None]
  - EXPRESSIVE LANGUAGE DISORDER [None]
  - FIBROMYALGIA [None]
  - PARAESTHESIA [None]
  - VITAMIN D ABNORMAL [None]
  - MENTAL STATUS CHANGES [None]
  - ITCHING SCAR [None]
  - VIITH NERVE PARALYSIS [None]
  - HEADACHE [None]
  - POLLAKIURIA [None]
